FAERS Safety Report 25915179 (Version 2)
Quarter: 2025Q4

REPORT INFORMATION
  Report Type: Spontaneous
  Country: EU (occurrence: EU)
  Receive Date: 20251013
  Receipt Date: 20251021
  Transmission Date: 20260118
  Serious: Yes (Hospitalization)
  Sender: REGENERON
  Company Number: EU-AFSSAPS-CN2025001089

PATIENT
  Age: 68 Year
  Sex: Male

DRUGS (15)
  1. LIBTAYO [Suspect]
     Active Substance: CEMIPLIMAB-RWLC
     Indication: Bronchial carcinoma
     Dosage: 350 MG EVERY 3 WEEKS
     Route: 042
     Dates: start: 20240503, end: 20241112
  2. CETIRIZINE [Concomitant]
     Active Substance: CETIRIZINE HYDROCHLORIDE
     Indication: Product used for unknown indication
     Dosage: 10 MG/D
     Route: 048
  3. SODIUM ALGINATE\SODIUM BICARBONATE [Concomitant]
     Active Substance: SODIUM ALGINATE\SODIUM BICARBONATE
     Indication: Gastrooesophageal reflux disease
     Dosage: 1 SACHET IF NEEDED FOR 3 MONTHS IF FEVER, MAX PER 24 HRS: 3  SACHETS, 6-HOUR INTERVAL BETWEEN DOSES
     Route: 048
  4. BISOPROLOL FUMARATE [Concomitant]
     Active Substance: BISOPROLOL FUMARATE
     Indication: Cardiac failure
     Dosage: 1.25 MG EVERY MORNING FOR 3 MONTHS
     Route: 048
  5. ATORVASTATIN CALCIUM [Concomitant]
     Active Substance: ATORVASTATIN CALCIUM
     Indication: Dyslipidaemia
     Dosage: 1 X 10 MG TABLET EVERY EVENING
     Route: 048
  6. POLYETHYLENE GLYCOL 4000 [Concomitant]
     Active Substance: POLYETHYLENE GLYCOL 4000
     Indication: Constipation
     Dosage: 2 SACHETS, IF NEEDED, FOR 3 MONTHS IF CONSTIPATION, 4 SACHETS  MAX PER 24 HRS WITH 4 HR INTERVAL BET
     Route: 048
  7. DULOXETINE HYDROCHLORIDE [Concomitant]
     Active Substance: DULOXETINE HYDROCHLORIDE
     Indication: Product used for unknown indication
     Dosage: 1 X 10 MG CAPSULE EVERY MORNING FOR 3 MONTHS
     Route: 048
  8. DOLIPRANE [Concomitant]
     Active Substance: ACETAMINOPHEN
     Indication: Pain
     Dosage: 2 X 500 MG CAPSULES, 4 TIMES A DAY
     Route: 048
  9. PANTOPRAZOLE SODIUM [Concomitant]
     Active Substance: PANTOPRAZOLE SODIUM
     Indication: Product used for unknown indication
     Dosage: 40 MG EVERY EVENING
     Route: 048
  10. PRADAXA [Concomitant]
     Active Substance: DABIGATRAN ETEXILATE MESYLATE
     Indication: Atrial fibrillation
     Dosage: 1 X 150 MG CAPSULE MORNING AND EVENING
     Route: 048
  11. PREDNISONE [Concomitant]
     Active Substance: PREDNISONE
     Indication: Product used for unknown indication
     Dosage: 2 X 5 MG TABLETS EVERY MORNING
     Route: 048
  12. SKENAN [Concomitant]
     Active Substance: MORPHINE SULFATE
     Indication: Pain
     Dosage: 1 X 30 MG CAPSULE MORNING AND EVENING
     Route: 048
  13. MORPHINE SULFATE [Concomitant]
     Active Substance: MORPHINE SULFATE
     Indication: Pain
     Dosage: 1 X 5 MG TABLET IF NEEDED, 6 TABLETS MAXIMUM PER 24 HOURS  WITH A 4-HOUR INTERVAL BETWEEN DOSES
     Route: 048
  14. METOTAB [METHOTREXATE] [Concomitant]
     Indication: Rheumatic disorder
     Dosage: 6 X 2.5 MG TABLETS EVERY THURSDAY
     Route: 048
     Dates: start: 20241002
  15. FOLIC ACID [Concomitant]
     Active Substance: FOLIC ACID
     Indication: Vitamin supplementation
     Dosage: 2 X 5 MG TABLETS EVERY SATURDAY
     Route: 048

REACTIONS (1)
  - Herpes zoster meningitis [Recovered/Resolved]

NARRATIVE: CASE EVENT DATE: 20241204
